FAERS Safety Report 7286186-2 (Version None)
Quarter: 2011Q1

REPORT INFORMATION
  Report Type: 
  Country: None (occurrence: None)
  Receive Date: 20110210
  Receipt Date: 20110131
  Transmission Date: 20110831
  Serious: Yes (Other)
  Sender: FDA-Public Use
  Company Number: PHHY2011US05015

PATIENT
  Sex: Female

DRUGS (6)
  1. ANTIHYPERTENSIVES [Concomitant]
     Dosage: UNK UKN, UNK
  2. HYDROCHLOROTHIAZDE TAB [Concomitant]
  3. VAMAX [Concomitant]
  4. WELLBUTRIN [Concomitant]
  5. GILENYA [Suspect]
     Indication: MULTIPLE SCLEROSIS
     Dosage: 0.5 MG, DAILY
     Route: 048
     Dates: start: 20110110, end: 20110119
  6. LEXAPRO [Concomitant]

REACTIONS (1)
  - HYPOTENSION [None]
